FAERS Safety Report 7864781-7 (Version None)
Quarter: 2011Q4

REPORT INFORMATION
  Report Type: 
  Country: None (occurrence: None)
  Receive Date: 20111028
  Receipt Date: 20111017
  Transmission Date: 20120403
  Serious: Yes (Death, Other)
  Sender: FDA-Public Use
  Company Number: GB-RANBAXY-2011R1-49609

PATIENT
  Age: 17 Year
  Sex: Male

DRUGS (1)
  1. FLUOXETINE HCL [Suspect]
     Indication: DEPRESSION
     Route: 065

REACTIONS (2)
  - MULTIPLE INJURIES [None]
  - SELF INJURIOUS BEHAVIOUR [None]
